FAERS Safety Report 11456972 (Version 4)
Quarter: 2015Q3

REPORT INFORMATION
  Report Type: Spontaneous
  Country: JP (occurrence: JP)
  Receive Date: 20150904
  Receipt Date: 20150914
  Transmission Date: 20151125
  Serious: Yes (Hospitalization)
  Sender: FDA-Public Use
  Company Number: PHJP2015JP014787

PATIENT
  Age: 72 Year
  Sex: Male

DRUGS (2)
  1. CARBAMAZEPINE. [Suspect]
     Active Substance: CARBAMAZEPINE
     Indication: PARTIAL SEIZURES
     Route: 048
  2. VALPROATE SODIUM. [Suspect]
     Active Substance: VALPROATE SODIUM
     Indication: PARTIAL SEIZURES
     Route: 065

REACTIONS (4)
  - Atrioventricular block [Unknown]
  - Atrial fibrillation [Unknown]
  - Status epilepticus [Unknown]
  - Pyrexia [Unknown]
